FAERS Safety Report 17869045 (Version 4)
Quarter: 2020Q3

REPORT INFORMATION
  Report Type: Report from Study
  Country: None (occurrence: US)
  Receive Date: 20200608
  Receipt Date: 20200910
  Transmission Date: 20201103
  Serious: Yes (Hospitalization, Other)
  Sender: FDA-Public Use
  Company Number: US-ABBVIE-20K-163-3431743-00

PATIENT
  Age: 36 Year
  Sex: Male
  Weight: 84.44 kg

DRUGS (2)
  1. HUMIRA [Suspect]
     Active Substance: ADALIMUMAB
     Indication: HIDRADENITIS
     Route: 058
     Dates: start: 202002, end: 202004
  2. HUMIRA [Suspect]
     Active Substance: ADALIMUMAB
     Route: 058
     Dates: start: 20200502

REACTIONS (6)
  - Skin lesion [Recovering/Resolving]
  - Hidradenitis [Unknown]
  - Swelling [Recovered/Resolved]
  - Perirectal abscess [Unknown]
  - Drug ineffective [Unknown]
  - Presyncope [Unknown]

NARRATIVE: CASE EVENT DATE: 2020
